FAERS Safety Report 5643934-2 (Version None)
Quarter: 2008Q1

REPORT INFORMATION
  Report Type: 
  Country: None (occurrence: None)
  Receive Date: 20080226
  Receipt Date: 20080219
  Transmission Date: 20080703
  Serious: Yes (Other)
  Sender: FDA-Public Use
  Company Number: 2008002567

PATIENT
  Age: 37 Year

DRUGS (2)
  1. ZYRTEC [Suspect]
     Dosage: SPLIT 5 MG TABLET ONCE DAILY,
  2. SINGULAIR ^DIECKMANN^ (MONTELUKAST SODIUM) [Concomitant]

REACTIONS (1)
  - WITHDRAWAL SYNDROME [None]
